FAERS Safety Report 10163581 (Version 1)
Quarter: 2014Q2

REPORT INFORMATION
  Report Type: Spontaneous
  Country: ZA (occurrence: ZA)
  Receive Date: 20140509
  Receipt Date: 20140509
  Transmission Date: 20141212
  Serious: Yes (Hospitalization)
  Sender: FDA-Public Use
  Company Number: PHHY2014ZA056156

PATIENT
  Sex: Female
  Weight: 81 kg

DRUGS (2)
  1. TEGRETOL [Suspect]
     Indication: EPILEPSY
     Dosage: 400 MG, BID
  2. CLEXANE [Suspect]
     Indication: ANTIPHOSPHOLIPID SYNDROME
     Dosage: 40 MG, QD
     Route: 058
     Dates: start: 20131212

REACTIONS (3)
  - Vaginal haemorrhage [Recovering/Resolving]
  - Cyst [Recovering/Resolving]
  - Maternal exposure during pregnancy [Unknown]
